FAERS Safety Report 11230123 (Version 1)
Quarter: 2015Q3

REPORT INFORMATION
  Report Type: Spontaneous
  Country: US (occurrence: US)
  Receive Date: 20150701
  Receipt Date: 20150701
  Transmission Date: 20151125
  Serious: No
  Sender: FDA-Public Use
  Company Number: US-009507513-1506USA001351

PATIENT
  Sex: Female
  Weight: 95.25 kg

DRUGS (1)
  1. NEXPLANON [Suspect]
     Active Substance: ETONOGESTREL
     Indication: CONTRACEPTION
     Dosage: 1 ROD 3 YEARS, LEFT ARM
     Route: 059
     Dates: start: 20140630

REACTIONS (9)
  - Menstruation irregular [Unknown]
  - Dysmenorrhoea [Unknown]
  - Loss of consciousness [Unknown]
  - Headache [Unknown]
  - Weight increased [Unknown]
  - Vision blurred [Unknown]
  - Implant site pain [Unknown]
  - Hypoaesthesia [Unknown]
  - Muscle twitching [Unknown]

NARRATIVE: CASE EVENT DATE: 2014
